FAERS Safety Report 8312557 (Version 2)
Quarter: 2013Q3

REPORT INFORMATION
  Report Type: Report from Study
  Country: MX (occurrence: MX)
  Receive Date: 20111227
  Receipt Date: 20130802
  Transmission Date: 20140515
  Serious: Yes (Other)
  Sender: FDA-Public Use
  Company Number: PHHY2011MX109689

PATIENT
  Age: 58 Year
  Sex: Female

DRUGS (5)
  1. TEGRETOL [Suspect]
     Indication: EPILEPSY
     Dosage: 4 DF, (4 TABLETS) DAILY
     Route: 048
  2. TEGRETOL [Suspect]
     Dosage: UNK UKN, UNK
     Route: 048
  3. LARGACTIL [Concomitant]
     Indication: NERVOUSNESS
     Dosage: 1.5 DF, DAILY
     Dates: start: 195301
  4. AVALOX [Concomitant]
     Indication: INFLUENZA
     Dosage: 1 DF, DAILY
  5. LEVOFLOXACIN [Concomitant]
     Indication: INFLUENZA
     Dosage: 1 DF, DAILY

REACTIONS (4)
  - Brain injury [Not Recovered/Not Resolved]
  - Nervous system disorder [Not Recovered/Not Resolved]
  - Influenza [Not Recovered/Not Resolved]
  - Convulsion [Not Recovered/Not Resolved]
